FAERS Safety Report 6803273-0 (Version None)
Quarter: 2010Q2

REPORT INFORMATION
  Report Type: 
  Country: None (occurrence: None)
  Receive Date: 20100628
  Receipt Date: 20091106
  Transmission Date: 20101027
  Serious: Yes (Hospitalization)
  Sender: FDA-Public Use
  Company Number: US-ASTRAZENECA-2009SE24842

PATIENT
  Sex: Male
  Weight: 70.3 kg

DRUGS (2)
  1. ZOLADEX [Suspect]
     Route: 058
  2. MORPHINE [Concomitant]

REACTIONS (1)
  - PAIN [None]
